FAERS Safety Report 9109398 (Version 3)
Quarter: 2013Q1

REPORT INFORMATION
  Report Type: Report from Study
  Country: LT (occurrence: LT)
  Receive Date: 20130222
  Receipt Date: 20130301
  Transmission Date: 20140127
  Serious: Yes (Hospitalization)
  Sender: FDA-Public Use
  Company Number: LT-JNJFOC-20120315157

PATIENT
  Age: 59 Year
  Sex: Female
  Weight: 47 kg

DRUGS (6)
  1. GOLIMUMAB [Suspect]
     Indication: RHEUMATOID ARTHRITIS
     Dosage: WEEK 0
     Route: 042
     Dates: start: 20100816
  2. GOLIMUMAB [Suspect]
     Indication: RHEUMATOID ARTHRITIS
     Dosage: WEEK 76
     Route: 042
     Dates: start: 20120131
  3. PREDNISOLONE [Concomitant]
     Indication: RHEUMATOID ARTHRITIS
     Route: 048
     Dates: start: 20100702
  4. FOLIC ACID [Concomitant]
     Indication: PROPHYLAXIS
     Route: 048
     Dates: start: 20100401
  5. SERETIDE [Concomitant]
     Indication: ASTHMA
     Route: 055
  6. MELOXICAM [Concomitant]
     Indication: RHEUMATOID ARTHRITIS
     Route: 048
     Dates: start: 20100401

REACTIONS (1)
  - Pneumonia [Recovered/Resolved]
